FAERS Safety Report 13653642 (Version 1)
Quarter: 2017Q2

REPORT INFORMATION
  Report Type: Spontaneous
  Country: CH (occurrence: CH)
  Receive Date: 20170614
  Receipt Date: 20170614
  Transmission Date: 20170830
  Serious: Yes (Other)
  Sender: FDA-Public Use
  Company Number: CH-APOPHARMA USA, INC.-2017AP012681

PATIENT

DRUGS (5)
  1. CYTARABINE. [Concomitant]
     Active Substance: CYTARABINE
     Indication: SURGICAL PRECONDITIONING
     Route: 065
  2. ETOPOSIDE. [Concomitant]
     Active Substance: ETOPOSIDE
     Indication: SURGICAL PRECONDITIONING
     Route: 065
  3. ALKERAN [Suspect]
     Active Substance: MELPHALAN
     Indication: SURGICAL PRECONDITIONING
     Route: 065
  4. CARMUSTINE [Concomitant]
     Active Substance: CARMUSTINE
     Indication: SURGICAL PRECONDITIONING
     Route: 065
  5. ALEMTUZUMAB [Concomitant]
     Active Substance: ALEMTUZUMAB
     Indication: STEM CELL TRANSPLANT
     Route: 065

REACTIONS (3)
  - Pancytopenia [Unknown]
  - Mucosal inflammation [Unknown]
  - Nausea [Unknown]
